FAERS Safety Report 13724531 (Version 4)
Quarter: 2017Q3

REPORT INFORMATION
  Report Type: Spontaneous
  Country: US (occurrence: US)
  Receive Date: 20170706
  Receipt Date: 20170810
  Transmission Date: 20171127
  Serious: Yes (Other)
  Sender: FDA-Public Use
  Company Number: US-SAOL THERAPEUTICS-2017SAO00759

PATIENT
  Age: 46 Year
  Sex: Male
  Weight: 79.37 kg

DRUGS (2)
  1. LIORESAL [Suspect]
     Active Substance: BACLOFEN
     Indication: SPINAL CORD INJURY
  2. LIORESAL [Suspect]
     Active Substance: BACLOFEN
     Indication: MUSCLE SPASTICITY
     Dosage: 389 ?G, \DAY
     Route: 037
     Dates: start: 20121002

REACTIONS (3)
  - Muscle spasticity [Recovered/Resolved]
  - Arthropathy [Not Recovered/Not Resolved]
  - Device damage [Recovered/Resolved]

NARRATIVE: CASE EVENT DATE: 201608
